FAERS Safety Report 5698634-X (Version None)
Quarter: 2008Q2

REPORT INFORMATION
  Report Type: 
  Country: None (occurrence: None)
  Receive Date: 20080408
  Receipt Date: 20061130
  Transmission Date: 20081010
  Serious: No
  Sender: FDA-Public Use
  Company Number: US-BAYER-US-2006-037285

PATIENT
  Sex: Female

DRUGS (1)
  1. MENOSTAR [Suspect]

REACTIONS (1)
  - DIZZINESS [None]
